FAERS Safety Report 18977904 (Version 1)
Quarter: 2021Q1

REPORT INFORMATION
  Report Type: Spontaneous
  Country: US (occurrence: US)
  Receive Date: 20210306
  Receipt Date: 20210306
  Transmission Date: 20210420
  Serious: No
  Sender: FDA-Public Use
  Company Number: US-GALDERMA-US2020049627

PATIENT
  Sex: Female

DRUGS (2)
  1. TRI?LUMA [Suspect]
     Active Substance: FLUOCINOLONE ACETONIDE\HYDROQUINONE\TRETINOIN
     Indication: SKIN HYPERPIGMENTATION
     Dosage: 0.01%/4%/0.05%
     Route: 061
     Dates: start: 202008, end: 2020
  2. TRI?LUMA [Suspect]
     Active Substance: FLUOCINOLONE ACETONIDE\HYDROQUINONE\TRETINOIN
     Dosage: 0.01%/4%/0.05%
     Route: 061
     Dates: start: 2020

REACTIONS (6)
  - Intentional underdose [Unknown]
  - Condition aggravated [Not Recovered/Not Resolved]
  - Intentional product misuse [Recovered/Resolved]
  - Skin burning sensation [Recovered/Resolved]
  - Intentional product use issue [Recovered/Resolved]
  - Skin hyperpigmentation [Not Recovered/Not Resolved]

NARRATIVE: CASE EVENT DATE: 2020
